FAERS Safety Report 5124649-6 (Version None)
Quarter: 2006Q4

REPORT INFORMATION
  Report Type: 
  Country: None (occurrence: None)
  Receive Date: 20061011
  Receipt Date: 20060918
  Transmission Date: 20070319
  Serious: Yes (Other)
  Sender: FDA-Public Use
  Company Number: US-BAYER-200613978BCC

PATIENT
  Age: 79 Year
  Sex: Female
  Weight: 53 kg

DRUGS (8)
  1. PHILLIPS MILK OF MAGNESIA LIQUID ORIGINAL [Suspect]
     Indication: CONSTIPATION
     Dosage: UNIT DOSE: 15 ML
     Route: 048
     Dates: start: 20060915
  2. PREMARIN [Concomitant]
  3. ACIPHEX [Concomitant]
  4. DIGITEK [Concomitant]
  5. LOTENSIN [Concomitant]
  6. MEVACOR [Concomitant]
  7. HYDROCHLOROTHIAZDE TAB [Concomitant]
  8. ATENOLOL [Concomitant]

REACTIONS (2)
  - FAECES DISCOLOURED [None]
  - HAEMATOCHEZIA [None]
